FAERS Safety Report 18837349 (Version 1)
Quarter: 2021Q1

REPORT INFORMATION
  Report Type: Spontaneous
  Country: US (occurrence: US)
  Receive Date: 20210203
  Receipt Date: 20210203
  Transmission Date: 20210419
  Serious: No
  Sender: FDA-Public Use
  Company Number: US-ALLERGAN-2029400US

PATIENT
  Age: 43 Year
  Sex: Female
  Weight: 111.58 kg

DRUGS (5)
  1. ZONISAMIDE. [Concomitant]
     Active Substance: ZONISAMIDE
     Indication: HEADACHE
     Dosage: 150 MG, QHS
  2. IMITREX [Concomitant]
     Active Substance: SUMATRIPTAN SUCCINATE
     Indication: HEADACHE
     Dosage: UNK
  3. BOTOX [Suspect]
     Active Substance: ONABOTULINUMTOXINA
     Indication: MIGRAINE
     Dosage: UNK, SINGLE
     Route: 065
  4. PLAQUENIL [Concomitant]
     Active Substance: HYDROXYCHLOROQUINE SULFATE
     Dosage: UNK
  5. RINVOQ [Concomitant]
     Active Substance: UPADACITINIB

REACTIONS (2)
  - Somnolence [Unknown]
  - Migraine [Unknown]

NARRATIVE: CASE EVENT DATE: 202005
